FAERS Safety Report 4662765-3 (Version None)
Quarter: 2005Q2

REPORT INFORMATION
  Report Type: 
  Country: None (occurrence: None)
  Receive Date: 20050512
  Receipt Date: 20050426
  Transmission Date: 20051028
  Serious: Yes (Other)
  Sender: FDA-Public Use
  Company Number: GBS041216214

PATIENT
  Age: 63 Year
  Sex: Female

DRUGS (1)
  1. FORTEO [Suspect]
     Indication: OSTEOPOROSIS
     Dosage: 20 UG DAY
     Dates: start: 20040901

REACTIONS (15)
  - AREFLEXIA [None]
  - BACK PAIN [None]
  - CONDITION AGGRAVATED [None]
  - DIFFICULTY IN WALKING [None]
  - HEADACHE [None]
  - HYPOAESTHESIA [None]
  - HYPOKINESIA [None]
  - INTERVERTEBRAL DISC DEGENERATION [None]
  - LIMB DISCOMFORT [None]
  - LUMBAR VERTEBRAL FRACTURE [None]
  - MERALGIA PARAESTHETICA [None]
  - MUSCLE CONTRACTIONS INVOLUNTARY [None]
  - NERVE ROOT COMPRESSION [None]
  - PAIN IN EXTREMITY [None]
  - SENSATION OF HEAVINESS [None]
